FAERS Safety Report 20752277 (Version 2)
Quarter: 2023Q2

REPORT INFORMATION
  Report Type: Other
  Country: US (occurrence: None)
  Receive Date: 20220426
  Receipt Date: 20230508
  Transmission Date: 20230722
  Serious: No
  Sender: FDA-Public Use
  Company Number: US-ROCHE-3082131

PATIENT
  Age: 29 Year
  Sex: Female

DRUGS (4)
  1. OCREVUS [Suspect]
     Active Substance: OCRELIZUMAB
     Indication: Relapsing-remitting multiple sclerosis
     Dosage: DATE OF TREATMENT: 21/DEC/2018, 10/JUL/2019, 16/OCT/2020, 02/APR/2021, 04/OCT/2021, 13/APR/2022, 20/
     Route: 042
     Dates: start: 20181207
  2. OCREVUS [Suspect]
     Active Substance: OCRELIZUMAB
     Indication: Tongue neoplasm malignant stage unspecified
  3. MODAFINIL [Concomitant]
     Active Substance: MODAFINIL
  4. TYSABRI [Concomitant]
     Active Substance: NATALIZUMAB

REACTIONS (1)
  - Influenza [Unknown]
